FAERS Safety Report 4315906-1 (Version None)
Quarter: 2004Q1

REPORT INFORMATION
  Report Type: 
  Country: None (occurrence: None)
  Receive Date: 20040311
  Receipt Date: 20040311
  Transmission Date: 20041129
  Serious: Yes (Other)
  Sender: FDA-Public Use
  Company Number: None

PATIENT
  Sex: Female
  Weight: 66.6788 kg

DRUGS (1)
  1. ESCITALOPRAM 10MG FOREST [Suspect]
     Indication: DEPRESSION
     Dosage: 30MG ONCE DAILY ORAL
     Route: 048
     Dates: start: 20040301, end: 20040310

REACTIONS (1)
  - ALOPECIA [None]
